FAERS Safety Report 6409613-9 (Version None)
Quarter: 2009Q4

REPORT INFORMATION
  Report Type: 
  Country: None (occurrence: None)
  Receive Date: 20091019
  Receipt Date: 20091019
  Transmission Date: 20100525
  Serious: No
  Sender: FDA-Public Use
  Company Number: None

PATIENT
  Age: 75 Year
  Sex: Male

DRUGS (10)
  1. AUGMENTIN '875' [Suspect]
     Dates: start: 20070416, end: 20070523
  2. OMEPRAZOLE [Concomitant]
  3. THEOPHYLLINE [Concomitant]
  4. HYDROCHLOROTHIAZIDE [Concomitant]
  5. METOPROLOL TARTRATE [Concomitant]
  6. DILTIAZEM [Concomitant]
  7. HYDROXYZINE [Concomitant]
  8. IPRATROPIUM [Concomitant]
  9. TRIAMCINOLONE ACETONIDE [Concomitant]
  10. CETIRIZINE HYDROCHLORIDE [Concomitant]

REACTIONS (8)
  - CHOLESTASIS [None]
  - CHROMATURIA [None]
  - DECREASED APPETITE [None]
  - HEPATOMEGALY [None]
  - JAUNDICE [None]
  - LIVER INJURY [None]
  - RASH [None]
  - TRANSIENT ISCHAEMIC ATTACK [None]
